FAERS Safety Report 6424485-4 (Version None)
Quarter: 2009Q4

REPORT INFORMATION
  Report Type: 
  Country: None (occurrence: None)
  Receive Date: 20091103
  Receipt Date: 20091027
  Transmission Date: 20100525
  Serious: Yes (Hospitalization, Other)
  Sender: FDA-Public Use
  Company Number: US-ROCHE-646349

PATIENT
  Sex: Female
  Weight: 108 kg

DRUGS (14)
  1. RIBAVIRIN [Suspect]
     Indication: HEPATITIS C
     Dosage: DIVIDED DOSES; DRUG REPORTED: RIBAVIRIN (DARK BLUE)
     Route: 048
     Dates: start: 20080714
  2. RIBAVIRIN [Suspect]
     Route: 048
     Dates: start: 20090119
  3. PEGASYS [Suspect]
     Indication: HEPATITIS C
     Route: 058
     Dates: start: 20080714
  4. PEGASYS [Suspect]
     Route: 058
     Dates: start: 20090119
  5. VICODIN ES [Concomitant]
     Route: 048
  6. NAPROSYN [Concomitant]
  7. XANAX [Concomitant]
  8. PAXIL [Concomitant]
     Dosage: QD
  9. MULTI-VITAMIN [Concomitant]
     Dosage: QD
  10. GAVISCON [Concomitant]
  11. PRILOSEC [Concomitant]
     Route: 048
  12. ZANTAC [Concomitant]
     Route: 048
  13. PHENERGAN HCL [Concomitant]
     Dosage: TAKEN AS NEEDED
  14. LISINOPRIL [Concomitant]
     Dosage: QD

REACTIONS (18)
  - BONE PAIN [None]
  - CRYING [None]
  - DEPRESSION [None]
  - DYSPEPSIA [None]
  - FAECES DISCOLOURED [None]
  - FALL [None]
  - FATIGUE [None]
  - GASTRITIS [None]
  - HYPERTENSION [None]
  - MALAISE [None]
  - MELAENA [None]
  - MUSCULAR WEAKNESS [None]
  - NAUSEA [None]
  - RASH [None]
  - RED BLOOD CELL COUNT DECREASED [None]
  - VOMITING [None]
  - WEIGHT DECREASED [None]
  - WHITE BLOOD CELL COUNT DECREASED [None]
